FAERS Safety Report 4617192-1 (Version None)
Quarter: 2005Q1

REPORT INFORMATION
  Report Type: 
  Country: None (occurrence: None)
  Receive Date: 20050323
  Receipt Date: 20050311
  Transmission Date: 20050727
  Serious: Yes (Other)
  Sender: FDA-Public Use
  Company Number: FR-BRISTOL-MYERS SQUIBB COMPANY-12896064

PATIENT
  Age: 33 Year
  Sex: Male
  Weight: 61 kg

DRUGS (4)
  1. REYATAZ [Suspect]
     Indication: HIV INFECTION
     Route: 048
     Dates: start: 20041207
  2. VIDEX EC [Suspect]
     Indication: HIV INFECTION
     Route: 048
     Dates: start: 20041207
  3. EPIVIR [Suspect]
     Indication: HIV INFECTION
     Dates: start: 20041207
  4. NORVIR [Suspect]
     Indication: HIV INFECTION
     Dates: start: 20041207

REACTIONS (2)
  - HYPERBILIRUBINAEMIA [None]
  - VISCERAL LEISHMANIASIS [None]
